FAERS Safety Report 17485942 (Version 6)
Quarter: 2020Q2

REPORT INFORMATION
  Report Type: Spontaneous
  Country: CA (occurrence: CA)
  Receive Date: 20200303
  Receipt Date: 20200610
  Transmission Date: 20200713
  Serious: Yes (Hospitalization, Other)
  Sender: FDA-Public Use
  Company Number: CA-CELLTRION INC.-2019CA023896

PATIENT

DRUGS (19)
  1. BIOTIN [Concomitant]
     Active Substance: BIOTIN
     Dosage: UNK, DAILY
  2. VANCOMYCIN [Concomitant]
     Active Substance: VANCOMYCIN
     Dosage: UNK, 2X/DAY
     Route: 065
  3. VITAMIN B12 [Concomitant]
     Active Substance: CYANOCOBALAMIN
     Dosage: 1000 UG/ML, (VIAL) MONTHLY
  4. INFLECTRA [Suspect]
     Active Substance: INFLIXIMAB-DYYB
     Dosage: 5 MG/KG, (0, 2, 6 THEN EVERY 8 WEEKS)
     Route: 042
     Dates: start: 20200327
  5. INFLECTRA [Suspect]
     Active Substance: INFLIXIMAB-DYYB
     Dosage: 5 MG/KG, (0, 2, 6 THEN EVERY 8 WEEKS)
     Route: 042
     Dates: start: 20200522
  6. APO-METHOTREXATE [Concomitant]
     Active Substance: METHOTREXATE
     Dosage: 2.5MG TAKE 8 TABLETS WEEKLY (SATURDAY)
     Route: 048
     Dates: start: 201907
  7. FOLIC ACID. [Concomitant]
     Active Substance: FOLIC ACID
     Dosage: 5 MG, 6 TIMES PER WEEK
     Dates: start: 201907
  8. FLAGYL [Concomitant]
     Active Substance: METRONIDAZOLE\METRONIDAZOLE HYDROCHLORIDE
     Dosage: 500 MG, 2X/DAY
     Route: 048
     Dates: start: 201903
  9. INFLECTRA [Suspect]
     Active Substance: INFLIXIMAB-DYYB
     Dosage: 5 MG/KG, (0, 2, 6 THEN EVERY 8 WEEKS)
     Route: 042
     Dates: start: 20191121
  10. OXYCODONE [Concomitant]
     Active Substance: OXYCODONE
     Indication: PAIN
     Dosage: 1-2 TABS AS NEEDED
     Route: 048
  11. INFLECTRA [Suspect]
     Active Substance: INFLIXIMAB-DYYB
     Indication: CROHN^S DISEASE
     Dosage: 5 MG/KG, (0, 2, 6 THEN EVERY 8 WEEKS )
     Route: 042
     Dates: start: 20190807
  12. AZITHROMYCIN ANHYDROUS. [Concomitant]
     Active Substance: AZITHROMYCIN ANHYDROUS
     Dosage: UNK
  13. CIPROFLOXACIN. [Concomitant]
     Active Substance: CIPROFLOXACIN
     Dosage: 500 MG, 2X/DAY
     Route: 048
     Dates: start: 201903
  14. METHOTREXATE. [Concomitant]
     Active Substance: METHOTREXATE
     Dosage: 2.5 MG, WEEKLY
     Route: 065
     Dates: start: 201801
  15. INFLECTRA [Suspect]
     Active Substance: INFLIXIMAB-DYYB
     Dosage: 5 MG/KG, (0, 2, 6 THEN EVERY 8 WEEKS )
     Route: 042
     Dates: start: 20190821
  16. INFLECTRA [Suspect]
     Active Substance: INFLIXIMAB-DYYB
     Dosage: 5 MG/KG, (0, 2, 6 THEN EVERY 8 WEEKS )
     Route: 042
     Dates: start: 20190917
  17. INFLECTRA [Suspect]
     Active Substance: INFLIXIMAB-DYYB
     Dosage: 5 MG/KG, (0, 2, 6 THEN EVERY 8 WEEKS)
     Route: 042
     Dates: start: 20200130
  18. DIPHENHYDRAMINE. [Concomitant]
     Active Substance: DIPHENHYDRAMINE
     Dosage: 50 MG, UNK
     Route: 048
  19. HYDROCORTISONE. [Concomitant]
     Active Substance: HYDROCORTISONE
     Dosage: 100 MG, UNK
     Route: 042

REACTIONS (50)
  - Off label use [Unknown]
  - Pharyngitis [Unknown]
  - Incontinence [Unknown]
  - Alopecia [Unknown]
  - Alanine aminotransferase increased [Unknown]
  - Red blood cell sedimentation rate increased [Unknown]
  - Haemorrhoids [Unknown]
  - Condition aggravated [Unknown]
  - Paraesthesia [Unknown]
  - Large intestinal ulcer [Unknown]
  - Therapeutic product effect incomplete [Unknown]
  - Discomfort [Unknown]
  - Sinusitis [Recovered/Resolved]
  - Fistula [Unknown]
  - Headache [Recovered/Resolved]
  - Nerve compression [Unknown]
  - Injury [Unknown]
  - Cystic fibrosis [Unknown]
  - Infusion site streaking [Unknown]
  - Haematocrit increased [Unknown]
  - Vitamin D decreased [Unknown]
  - Blood pressure increased [Unknown]
  - Chest discomfort [Unknown]
  - Cough [Unknown]
  - Frequent bowel movements [Not Recovered/Not Resolved]
  - White blood cell disorder [Unknown]
  - Diverticulum [Unknown]
  - Pneumonia [Recovered/Resolved]
  - Proctalgia [Unknown]
  - Oropharyngeal pain [Not Recovered/Not Resolved]
  - Haemoglobin increased [Unknown]
  - Abdominal discomfort [Unknown]
  - Urinary tract infection [Unknown]
  - Stress [Unknown]
  - Malaise [Unknown]
  - Blood cholesterol increased [Unknown]
  - Blood triglycerides increased [Unknown]
  - Pain [Unknown]
  - Lower respiratory tract infection [Unknown]
  - Vaginal infection [Recovering/Resolving]
  - Vulval abscess [Recovering/Resolving]
  - COVID-19 [Unknown]
  - Nasopharyngitis [Unknown]
  - Procedural anxiety [Unknown]
  - Intentional product use issue [Unknown]
  - Anxiety [Unknown]
  - Anorectal discomfort [Unknown]
  - Drug level above therapeutic [Unknown]
  - Heart rate decreased [Unknown]
  - Back pain [Unknown]

NARRATIVE: CASE EVENT DATE: 20190807
